FAERS Safety Report 4840490-3 (Version None)
Quarter: 2005Q4

REPORT INFORMATION
  Report Type: 
  Country: None (occurrence: None)
  Receive Date: 20051130
  Receipt Date: 20050812
  Transmission Date: 20060501
  Serious: No
  Sender: FDA-Public Use
  Company Number: US-BRISTOL-MYERS SQUIBB COMPANY-13076849

PATIENT
  Age: 56 Year
  Sex: Male
  Weight: 98 kg

DRUGS (8)
  1. ERBITUX [Suspect]
     Indication: COLORECTAL CANCER
     Route: 042
     Dates: start: 20050729, end: 20050729
  2. KYTRIL [Concomitant]
     Indication: PREMEDICATION
     Route: 042
  3. DECADRON [Concomitant]
     Indication: PREMEDICATION
     Route: 042
  4. BENADRYL [Concomitant]
     Indication: PREMEDICATION
     Route: 042
  5. ATROPINE [Concomitant]
     Indication: PREMEDICATION
     Route: 042
  6. TYLENOL [Concomitant]
     Indication: PREMEDICATION
     Route: 048
  7. IRINOTECAN HCL [Concomitant]
  8. AVASTIN [Concomitant]
     Route: 042

REACTIONS (1)
  - DERMATITIS ACNEIFORM [None]
